FAERS Safety Report 20493026 (Version 1)
Quarter: 2022Q1

REPORT INFORMATION
  Report Type: Spontaneous
  Country: US (occurrence: US)
  Receive Date: 20220220
  Receipt Date: 20220220
  Transmission Date: 20220423
  Serious: No
  Sender: FDA-Public Use
  Company Number: US-drreddys-SPO/USA/22/0146981

PATIENT
  Age: 16 Year
  Sex: Male

DRUGS (2)
  1. ACCUTANE [Suspect]
     Active Substance: ISOTRETINOIN
     Indication: Product used for unknown indication
     Dosage: RMA ISSUE DATE: 14 SEPTEMBER 2021 12:40:53 PM, 16 NOVEMBER 2021 06:22:20 PM, 16 NOVEMBER 2021 06:22:
  2. ACCUTANE [Suspect]
     Active Substance: ISOTRETINOIN
     Dosage: RMA ISSUE DATE: 05 AUGUST 2021 03:20:10 PM, 14 SEPTEMBER 2021 12:41:06 PM, 16 NOVEMBER 2021; 06:24:1

REACTIONS (1)
  - Laboratory test abnormal [Unknown]
